FAERS Safety Report 12951901 (Version 5)
Quarter: 2017Q1

REPORT INFORMATION
  Report Type: Spontaneous
  Country: HU (occurrence: HU)
  Receive Date: 20161117
  Receipt Date: 20170112
  Transmission Date: 20170428
  Serious: Yes (Other)
  Sender: FDA-Public Use
  Company Number: HU-PFIZER INC-2016529950

PATIENT
  Age: 56 Year
  Sex: Male

DRUGS (10)
  1. SUTENT [Suspect]
     Active Substance: SUNITINIB MALATE
     Dosage: 50 MG, 1X/DAY, ACCORDING TO 2/1 SCHEMA
     Route: 048
     Dates: start: 20160803, end: 20161101
  2. ATORVA TEVA [Concomitant]
     Dosage: 1X1
  3. COVEREX AS KOMB FORTE [Concomitant]
     Dosage: 1X1
  4. MILURIT [Concomitant]
     Active Substance: ALLOPURINOL
     Dosage: 2X1
  5. NEBIVOLOL. [Concomitant]
     Active Substance: NEBIVOLOL
     Dosage: 1X1
  6. SYNCUMAR [Concomitant]
     Active Substance: ACENOCOUMAROL
     Dosage: UNK
  7. AMLODIPIN TEVA [Concomitant]
     Active Substance: AMLODIPINE BESYLATE
     Dosage: 1X1
  8. FURON /00032601/ [Concomitant]
     Active Substance: FUROSEMIDE
     Dosage: EVERY 2 WEEKS ONCE
  9. KALDYUM [Concomitant]
     Active Substance: POTASSIUM CHLORIDE
     Dosage: UNK
  10. SUTENT [Suspect]
     Active Substance: SUNITINIB MALATE
     Indication: CLEAR CELL RENAL CELL CARCINOMA
     Dosage: 50 MG, 1X/DAY, ACCORDING TO 4/2 SCHEMA
     Route: 048
     Dates: start: 20151103

REACTIONS (11)
  - Oropharyngeal pain [Recovered/Resolved]
  - Prothrombin time prolonged [Unknown]
  - Pyrexia [Recovered/Resolved]
  - Asthenia [Recovered/Resolved]
  - Haemoglobin decreased [Unknown]
  - Haematocrit decreased [Unknown]
  - Protein urine present [Unknown]
  - Diarrhoea haemorrhagic [Recovered/Resolved]
  - Red blood cell count decreased [Unknown]
  - Conjunctivitis [Recovered/Resolved]
  - International normalised ratio increased [Unknown]

NARRATIVE: CASE EVENT DATE: 20161102
